FAERS Safety Report 14262408 (Version 1)
Quarter: 2017Q4

REPORT INFORMATION
  Report Type: Report from Study
  Country: US (occurrence: US)
  Receive Date: 20171208
  Receipt Date: 20171208
  Transmission Date: 20180321
  Serious: No
  Sender: FDA-Public Use
  Company Number: US-KYOWAKIRIN-2017BKK001322

PATIENT

DRUGS (7)
  1. SENOKOT-S [Concomitant]
     Active Substance: DOCUSATE SODIUM\SENNOSIDES
     Indication: LAXATIVE SUPPORTIVE CARE
     Dosage: UNK
     Route: 065
     Dates: start: 20170301
  2. GRANISETRON [Suspect]
     Active Substance: GRANISETRON
     Dosage: 1 DF, SINGLE
     Route: 062
     Dates: start: 20170503, end: 20170503
  3. COLACE [Concomitant]
     Active Substance: DOCUSATE SODIUM
     Indication: LAXATIVE SUPPORTIVE CARE
     Dosage: UNK
     Route: 065
     Dates: start: 20170301
  4. NORCO [Concomitant]
     Active Substance: ACETAMINOPHEN\HYDROCODONE BITARTRATE
     Indication: ANALGESIC THERAPY
     Dosage: 5-325 MG, UNK
     Dates: start: 20170403
  5. GRANISETRON [Suspect]
     Active Substance: GRANISETRON
     Indication: PROPHYLAXIS OF NAUSEA AND VOMITING
     Dosage: 1 DF
     Route: 062
     Dates: start: 20170412, end: 20170413
  6. LOVENOX [Concomitant]
     Active Substance: ENOXAPARIN SODIUM
     Indication: PULMONARY THROMBOSIS
     Dosage: UNKNOWN
     Route: 065
  7. MIRALAX [Concomitant]
     Active Substance: POLYETHYLENE GLYCOL 3350
     Indication: LAXATIVE SUPPORTIVE CARE
     Dosage: UNK
     Route: 065
     Dates: start: 20170301

REACTIONS (6)
  - Inappropriate schedule of drug administration [Recovered/Resolved]
  - Constipation [Recovering/Resolving]
  - Vomiting [Recovered/Resolved]
  - Malaise [Unknown]
  - Fatigue [Unknown]
  - Drug ineffective [Unknown]

NARRATIVE: CASE EVENT DATE: 201704
